FAERS Safety Report 12388720 (Version 1)
Quarter: 2016Q2

REPORT INFORMATION
  Report Type: Spontaneous
  Country: US (occurrence: None)
  Receive Date: 20160519
  Receipt Date: 20160519
  Transmission Date: 20160815
  Serious: Yes (Hospitalization)
  Sender: FDA-Public Use
  Company Number: None

PATIENT
  Age: 84 Year
  Sex: Male
  Weight: 90.9 kg

DRUGS (1)
  1. DAPTOMYCIN. [Suspect]
     Active Substance: DAPTOMYCIN
     Indication: ENDOCARDITIS ENTEROCOCCAL
     Route: 042
     Dates: start: 20160122, end: 20160222

REACTIONS (2)
  - Pneumonia [None]
  - Alveolitis allergic [None]

NARRATIVE: CASE EVENT DATE: 20160225
